FAERS Safety Report 10673095 (Version 2)
Quarter: 2015Q1

REPORT INFORMATION
  Report Type: Report from Study
  Country: US (occurrence: US)
  Receive Date: 20141223
  Receipt Date: 20150323
  Transmission Date: 20150720
  Serious: Yes (Hospitalization)
  Sender: FDA-Public Use
  Company Number: US-ABBVIE-14K-163-1323391-00

PATIENT
  Age: 71 Year
  Sex: Female
  Weight: 72.19 kg

DRUGS (14)
  1. HUMIRA [Suspect]
     Active Substance: ADALIMUMAB
     Indication: RHEUMATOID ARTHRITIS
     Route: 065
     Dates: start: 2006
  2. NITROSTAT [Concomitant]
     Active Substance: NITROGLYCERIN
     Indication: CORONARY ARTERIAL STENT INSERTION
  3. HUMIRA [Suspect]
     Active Substance: ADALIMUMAB
     Indication: UVEITIS
  4. METOPROLOL [Suspect]
     Active Substance: METOPROLOL
     Route: 065
     Dates: start: 201411
  5. SINGULAIR [Concomitant]
     Active Substance: MONTELUKAST SODIUM
     Indication: ASTHMA
  6. METFORMIN [Concomitant]
     Active Substance: METFORMIN HYDROCHLORIDE
     Indication: DIABETES MELLITUS
  7. PRAVASTATIN [Concomitant]
     Active Substance: PRAVASTATIN\PRAVASTATIN SODIUM
     Indication: CORONARY ARTERY DISEASE
  8. CYMBALTA [Concomitant]
     Active Substance: DULOXETINE HYDROCHLORIDE
     Indication: FIBROMYALGIA
  9. LISINOPRIL. [Concomitant]
     Active Substance: LISINOPRIL
     Indication: HYPERTENSION
  10. VENTOLIN [Concomitant]
     Active Substance: ALBUTEROL SULFATE
     Indication: ASTHMA
  11. CLOPIDOGREL [Concomitant]
     Active Substance: CLOPIDOGREL BISULFATE
     Indication: CORONARY ARTERIAL STENT INSERTION
  12. METOPROLOL [Suspect]
     Active Substance: METOPROLOL
     Indication: CARDIAC DISORDER
     Dosage: DOSAGE DECREASED
     Route: 065
     Dates: end: 201411
  13. ADVAIR HFA [Concomitant]
     Active Substance: FLUTICASONE PROPIONATE\SALMETEROL XINAFOATE
     Indication: ASTHMA
  14. SPIRIVA [Concomitant]
     Active Substance: TIOTROPIUM BROMIDE MONOHYDRATE
     Indication: ASTHMA

REACTIONS (13)
  - Local swelling [Recovered/Resolved]
  - Musculoskeletal pain [Recovered/Resolved]
  - Pain in extremity [Recovered/Resolved]
  - Injection site pain [Not Recovered/Not Resolved]
  - Dyspnoea [Recovered/Resolved]
  - Back pain [Recovered/Resolved]
  - Gait disturbance [Recovered/Resolved]
  - Extrasystoles [Recovered/Resolved]
  - Dyspnoea [Not Recovered/Not Resolved]
  - Cholelithiasis [Not Recovered/Not Resolved]
  - Hepatic enzyme increased [Not Recovered/Not Resolved]
  - Coronary artery occlusion [Recovered/Resolved]
  - Hepatitis C [Not Recovered/Not Resolved]

NARRATIVE: CASE EVENT DATE: 201308
